FAERS Safety Report 6206626-7 (Version None)
Quarter: 2009Q2

REPORT INFORMATION
  Report Type: 
  Country: None (occurrence: None)
  Receive Date: 20090528
  Receipt Date: 20090526
  Transmission Date: 20091009
  Serious: Yes (Hospitalization, Other)
  Sender: FDA-Public Use
  Company Number: AU-ASTRAZENECA-2009AP03291

PATIENT
  Age: 56 Year
  Sex: Female

DRUGS (6)
  1. SEROQUEL [Suspect]
     Indication: BIPOLAR DISORDER
     Dosage: 50-400MG
     Route: 048
     Dates: start: 20040101
  2. SEROQUEL [Suspect]
     Route: 048
  3. SEROQUEL [Suspect]
     Route: 048
  4. EFFEXOR [Concomitant]
  5. VALIUM [Concomitant]
  6. XANAX [Concomitant]

REACTIONS (11)
  - BLOOD CHROMOGRANIN A INCREASED [None]
  - BLOOD PROLACTIN INCREASED [None]
  - BREAST MASS [None]
  - BREAST SWELLING [None]
  - EATING DISORDER [None]
  - FORMICATION [None]
  - INSULIN RESISTANCE [None]
  - LETHARGY [None]
  - PSORIASIS [None]
  - SUICIDAL IDEATION [None]
  - WEIGHT INCREASED [None]
